FAERS Safety Report 7746619-1 (Version None)
Quarter: 2011Q3

REPORT INFORMATION
  Report Type: 
  Country: None (occurrence: None)
  Receive Date: 20110913
  Receipt Date: 20110901
  Transmission Date: 20111222
  Serious: Yes (Other)
  Sender: FDA-Public Use
  Company Number: JP-NOVOPROD-334481

PATIENT

DRUGS (6)
  1. ALFAROL [Concomitant]
     Dosage: UNK
     Route: 048
  2. CRESTOR [Concomitant]
     Dosage: UNK
     Route: 048
  3. EVISTA [Concomitant]
     Dosage: UNK
     Route: 048
  4. GLUFAST [Concomitant]
     Dosage: 5 MG, QD
     Route: 048
  5. VICTOZA [Suspect]
     Indication: TYPE 2 DIABETES MELLITUS
     Dosage: 0.6 MG, QD
     Route: 058
     Dates: start: 20101101
  6. VICTOZA [Suspect]
     Dosage: 0.9 MG, QD
     Route: 058
     Dates: end: 20110829

REACTIONS (2)
  - PAPILLOEDEMA [None]
  - OPTIC NEUROPATHY [None]
